FAERS Safety Report 10141339 (Version 1)
Quarter: 2014Q2

REPORT INFORMATION
  Report Type: Spontaneous
  Country: US (occurrence: US)
  Receive Date: 20140429
  Receipt Date: 20140429
  Transmission Date: 20141212
  Serious: Yes (Other)
  Sender: FDA-Public Use
  Company Number: PHHY2014US049649

PATIENT
  Age: 55 Year
  Sex: Male

DRUGS (13)
  1. ACETYLSALICYLIC ACID [Suspect]
     Dosage: UNK UKN, UNK
  2. PRASUGREL//PRASUGREL HYDROCHLORIDE [Suspect]
  3. RIVAROXABAN [Suspect]
     Indication: THROMBOSIS PROPHYLAXIS
     Route: 048
  4. ATORVASTATIN [Concomitant]
  5. CLONIDINE [Concomitant]
  6. FUROSEMIDE [Concomitant]
  7. POTASSIUM CHLORIDE [Concomitant]
  8. AMLODIPINE [Concomitant]
  9. INSULIN [Concomitant]
  10. ALLOPURINOL [Concomitant]
  11. HYDRALAZINE [Concomitant]
  12. HEPARIN [Concomitant]
  13. DILTIAZEM [Concomitant]
     Route: 041

REACTIONS (1)
  - Epistaxis [Recovered/Resolved]
